FAERS Safety Report 7277530-0 (Version None)
Quarter: 2011Q1

REPORT INFORMATION
  Report Type: 
  Country: None (occurrence: None)
  Receive Date: 20110207
  Receipt Date: 20110131
  Transmission Date: 20110831
  Serious: Yes (Hospitalization, Other)
  Sender: FDA-Public Use
  Company Number: CN-SANOFI-AVENTIS-2011SA004433

PATIENT
  Age: 72 Year
  Sex: Male

DRUGS (5)
  1. SUNITINIB [Suspect]
     Indication: RENAL CELL CARCINOMA
     Route: 048
     Dates: start: 20091030, end: 20101210
  2. CALCITRIOL [Concomitant]
  3. FELODIPINE [Concomitant]
  4. HERBAL PREPARATION [Concomitant]
  5. FUROSEMIDE [Suspect]
     Route: 065

REACTIONS (2)
  - BLOOD CREATININE INCREASED [None]
  - PROTEINURIA [None]
